FAERS Safety Report 4464210-X (Version None)
Quarter: 2004Q4

REPORT INFORMATION
  Report Type: 
  Country: None (occurrence: None)
  Receive Date: 20041001
  Receipt Date: 20040319
  Transmission Date: 20050328
  Serious: Yes (Hospitalization, Disabling)
  Sender: FDA-Public Use
  Company Number: FR-GLAXOSMITHKLINE-B0327508A

PATIENT
  Age: 21 Year
  Sex: Female

DRUGS (3)
  1. NARAMIG [Suspect]
     Indication: MIGRAINE
     Dosage: 2.5MG TWICE PER DAY
     Route: 048
     Dates: start: 20030703, end: 20030703
  2. ORAL CONTRACEPTION [Concomitant]
     Indication: CONTRACEPTION
     Route: 048
  3. ACETAMINOPHEN [Concomitant]
     Indication: MIGRAINE
     Dosage: 2UD PER DAY
     Route: 048

REACTIONS (2)
  - CEREBROVASCULAR ACCIDENT [None]
  - HEMIANOPIA HOMONYMOUS [None]
